FAERS Safety Report 8540570-5 (Version None)
Quarter: 2012Q3

REPORT INFORMATION
  Report Type: 
  Country: None (occurrence: None)
  Receive Date: 20120726
  Receipt Date: 20111027
  Transmission Date: 20120928
  Serious: No
  Sender: FDA-Public Use
  Company Number: US-ASTRAZENECA-2011SE45901

PATIENT
  Sex: Male
  Weight: 83.9 kg

DRUGS (2)
  1. SEROQUEL [Suspect]
     Indication: SLEEP DISORDER
     Route: 048
  2. SEROQUEL [Suspect]
     Indication: DEPRESSION
     Route: 048

REACTIONS (7)
  - DRUG DOSE OMISSION [None]
  - HALLUCINATION [None]
  - MALAISE [None]
  - DIZZINESS [None]
  - WITHDRAWAL SYNDROME [None]
  - OFF LABEL USE [None]
  - VOMITING [None]
